FAERS Safety Report 19161677 (Version 8)
Quarter: 2022Q3

REPORT INFORMATION
  Report Type: Report from Study
  Country: GB (occurrence: GB)
  Receive Date: 20210421
  Receipt Date: 20220715
  Transmission Date: 20221027
  Serious: Yes (Death, Hospitalization, Other)
  Sender: FDA-Public Use
  Company Number: GB-CELLTRION INC.-2021GB005383

PATIENT

DRUGS (84)
  1. TRASTUZUMAB [Suspect]
     Active Substance: TRASTUZUMAB
     Indication: Breast cancer metastatic
     Dosage: 798 MG (PLANNED NUMBER OF CYCLES COMPLETED) (DOSAGE FORM: 230; CUMULATIVE DOSE TO FIRST REACTION: 19
     Route: 042
     Dates: start: 20161020, end: 20161020
  2. TRASTUZUMAB [Suspect]
     Active Substance: TRASTUZUMAB
     Dosage: 600 MG, EVERY 3 WEEKS (DOSAGE FORM: 230; CUMULATIVE DOSE TO FIRST REACTION: 1966.304 MG)
     Route: 042
     Dates: start: 20161117
  3. TRASTUZUMAB [Suspect]
     Active Substance: TRASTUZUMAB
     Dosage: 300 MG (DOSAGE FORM: 230; CUMULATIVE DOSE TO FIRST REACTION: 1966.304 MG)
     Route: 042
     Dates: start: 20181214
  4. TRASTUZUMAB [Suspect]
     Active Substance: TRASTUZUMAB
     Dosage: 600 MG, Q3W (DOSAGE FORM: 230; CUMULATIVE DOSE TO FIRST REACTION: 1885.7142 MG)
     Route: 042
     Dates: start: 20161117
  5. DOCETAXEL [Suspect]
     Active Substance: DOCETAXEL
     Indication: Breast cancer metastatic
     Dosage: 120 MG, EVERY 3 WEEKS, LAST DOSE RECEIVED ON 21MAR2017, 6 CYCLES (CUMULATIVE DOSE TO FIRST REACTION:
     Route: 042
     Dates: start: 20161117, end: 20170321
  6. DOCETAXEL [Suspect]
     Active Substance: DOCETAXEL
     Dosage: 120 MG, TIW (LAST DOSE RECEIVED ON 21 MAR 20176 CYCLES); CUMULATIVE DOSE TO FIRST REACTION: 377.1428
     Route: 042
     Dates: start: 20161117
  7. PERTUZUMAB [Suspect]
     Active Substance: PERTUZUMAB
     Indication: Breast cancer metastatic
     Dosage: 840 MG (PLANNED NUMBER OF CYCLES COMPLETED) (DOSAGE FORM: 230; CUMULATIVE DOSE TO FIRST REACTION: 13
     Route: 042
     Dates: start: 20161020, end: 20161020
  8. PERTUZUMAB [Suspect]
     Active Substance: PERTUZUMAB
     Dosage: 420 MG, EVERY 3 WEEKS (DOSAGE FORM: 230; CUMULATIVE DOSE TO FIRST REACTION: 1376.413 MG)
     Route: 042
     Dates: start: 20161117, end: 20181122
  9. PERTUZUMAB [Suspect]
     Active Substance: PERTUZUMAB
     Dosage: 420 MG, Q3W (DOSAGE FORM: 230; CUMULATIVE DOSE TO FIRST REACTION: 1338.179 MG)
     Route: 042
     Dates: start: 20161117, end: 20181122
  10. PERTUZUMAB [Suspect]
     Active Substance: PERTUZUMAB
     Dosage: 840 MG (PLANNED NUMBER OF CYCLES COMPLETED) (DOSAGE FORM: 230; CUMULATIVE DOSE TO FIRST REACTION: 13
     Route: 042
     Dates: start: 20161020, end: 20161020
  11. AMOXICILLIN [Concomitant]
     Active Substance: AMOXICILLIN
     Indication: Rhinitis
     Dosage: 500 MG
     Route: 048
     Dates: start: 20181205, end: 20181205
  12. BISACODYL [Concomitant]
     Active Substance: BISACODYL
     Indication: Constipation
     Dosage: UNK (DOSAGE FORM: 245)
     Route: 048
     Dates: start: 20170109, end: 20190326
  13. BUPRENORPHINE [Concomitant]
     Active Substance: BUPRENORPHINE
     Indication: Pain
     Dosage: EVERY 1 WEEK
     Route: 062
     Dates: start: 20181023, end: 20181212
  14. BUPRENORPHINE [Concomitant]
     Active Substance: BUPRENORPHINE
     Dosage: 10 UG, WEEKLY
     Route: 062
     Dates: start: 20181212, end: 20190326
  15. BUPRENORPHINE [Concomitant]
     Active Substance: BUPRENORPHINE
     Dosage: 10 UG
     Route: 062
     Dates: start: 20181023, end: 20181212
  16. BUPRENORPHINE [Concomitant]
     Active Substance: BUPRENORPHINE
     Dosage: 10 UG
     Route: 062
     Dates: start: 20181212
  17. CANDESTAN [Concomitant]
     Indication: Candida infection
     Dosage: 100 MG
     Route: 067
     Dates: start: 20180419, end: 20180419
  18. CLOTRIMAZOLE [Concomitant]
     Active Substance: CLOTRIMAZOLE
     Indication: Product used for unknown indication
  19. HERBALS\SENNOSIDES [Concomitant]
     Active Substance: HERBALS\SENNOSIDES
     Indication: Product used for unknown indication
     Dosage: 15 MG, 1X/DAY (CUMULATIVE DOSE TO FIRST REACTION: 3644.375 MG)
     Route: 048
     Dates: start: 20170922, end: 20180404
  20. CHLORPHENIRAMINE MALEATE [Concomitant]
     Active Substance: CHLORPHENIRAMINE MALEATE
     Indication: Product used for unknown indication
     Dosage: 10 MG, UNK
     Route: 042
     Dates: start: 20161117, end: 20161117
  21. DEXAMETHASONE [Concomitant]
     Active Substance: DEXAMETHASONE
     Indication: Visual impairment
     Dosage: 8 MG, 1X/DAY (CUMULATIVE DOSE TO FIRST REACTION: 32 MG)
     Route: 048
     Dates: start: 20181208, end: 20181213
  22. DEXAMETHASONE [Concomitant]
     Active Substance: DEXAMETHASONE
     Indication: Seizure
     Dosage: 12 MG, 1X/DAY (CUMULATIVE DOSE TO FIRST REACTION: 32 MG)
     Route: 048
     Dates: start: 20181214, end: 20190124
  23. DEXAMETHASONE [Concomitant]
     Active Substance: DEXAMETHASONE
     Indication: Metastases to central nervous system
     Dosage: 6 MG, 1X/DAY (CUMULATIVE DOSE TO FIRST REACTION: 32 MG)
     Route: 048
     Dates: start: 20170125
  24. DEXAMETHASONE [Concomitant]
     Active Substance: DEXAMETHASONE
     Dosage: 14 MG (CUMULATIVE DOSE TO FIRST REACTION: 32 MG)
     Route: 048
     Dates: start: 20190124, end: 20190326
  25. DEXAMETHASONE [Concomitant]
     Active Substance: DEXAMETHASONE
     Dosage: 2 MG, 1X/DAY  (CUMULATIVE DOSE TO FIRST REACTION: 32 MG)
     Route: 048
     Dates: start: 20170308, end: 20170831
  26. DEXAMETHASONE [Concomitant]
     Active Substance: DEXAMETHASONE
     Dosage: 6 MG (CUMULATIVE DOSE TO FIRST REACTION: 32 MG)
     Route: 048
     Dates: start: 20181205, end: 20181205
  27. DEXAMETHASONE [Concomitant]
     Active Substance: DEXAMETHASONE
     Dosage: 1 MG, 1X/DAY (CUMULATIVE DOSE TO FIRST REACTION: 32 MG)
     Route: 048
     Dates: start: 20170831, end: 20180308
  28. DEXAMETHASONE [Concomitant]
     Active Substance: DEXAMETHASONE
     Dosage: 0.25 MG, 1X/DAY CUMULATIVE DOSE TO FIRST REACTION: 32 MG)
     Route: 048
     Dates: start: 20180419, end: 20180510
  29. DEXAMETHASONE [Concomitant]
     Active Substance: DEXAMETHASONE
     Dosage: 0.25 UG, 1X/DAY (CUMULATIVE DOSE TO FIRST REACTION: 32 MG)
     Route: 048
     Dates: start: 20180621, end: 20190326
  30. DEXAMETHASONE [Concomitant]
     Active Substance: DEXAMETHASONE
     Dosage: 4 MG, 1X/DAY (CUMULATIVE DOSE TO FIRST REACTION: 32 MG)
     Route: 048
     Dates: start: 20170126, end: 20170308
  31. DEXAMETHASONE [Concomitant]
     Active Substance: DEXAMETHASONE
     Dosage: 8 MG, 2X/DAY (CUMULATIVE DOSE TO FIRST REACTION: 32 MG)
     Route: 048
     Dates: start: 20181206, end: 20181207
  32. DEXAMETHASONE [Concomitant]
     Active Substance: DEXAMETHASONE
     Dosage: 8 MG, 1X/DAY, (CUMULATIVE DOSE TO FIRST REACTION: 32 MG)
     Route: 048
     Dates: start: 20161116, end: 20161119
  33. DEXAMETHASONE [Concomitant]
     Active Substance: DEXAMETHASONE
     Dosage: 0.5 MG, 1X/DAY (CUMULATIVE DOSE TO FIRST REACTION: 32 MG)
     Route: 048
     Dates: start: 20180308, end: 20180419
  34. DEXAMETHASONE [Concomitant]
     Active Substance: DEXAMETHASONE
     Dosage: 8 MG,0.5(CUMULATIVE DOSE TO FIRST REACTION: 32 MG)
     Route: 048
     Dates: start: 20181206, end: 20181207
  35. FILGRASTIM [Concomitant]
     Active Substance: FILGRASTIM
     Dosage: 480 UG, DAYS 2-6 POST CHEMO
     Route: 058
     Dates: start: 20161118, end: 20161121
  36. FLUCLOXACILLIN [Concomitant]
     Active Substance: FLUCLOXACILLIN
     Indication: Product used for unknown indication
     Dosage: 500 MG, 4X/DAY (CUMULATIVE DOSE TO FIRST REACTION: 16000 MG)
     Route: 048
     Dates: start: 20170406, end: 20170413
  37. FLUCLOXACILLIN [Concomitant]
     Active Substance: FLUCLOXACILLIN
     Dosage: 500 MG EVERY 0.25 DAY
     Route: 048
     Dates: start: 20170406, end: 20170413
  38. FLUCONAZOLE [Concomitant]
     Active Substance: FLUCONAZOLE
     Indication: Product used for unknown indication
     Dosage: 50 MG, 1X/DAY (CUMULATIVE DOSE TO FIRST REACTION: 400 MG)
     Route: 048
     Dates: start: 20161207, end: 20161214
  39. FLUCONAZOLE [Concomitant]
     Active Substance: FLUCONAZOLE
     Dosage: 50 MG, QD (CUMULATIVE DOSE TO FIRST REACTION: 350 MG)
     Route: 048
     Dates: start: 20161207, end: 20161214
  40. GABAPENTIN [Concomitant]
     Active Substance: GABAPENTIN
     Indication: Pain
     Dosage: 300 MG, 3X/DAY (CUMULATIVE DOSE TO FIRST REACTION: 268200.0 MG)
     Route: 048
     Dates: start: 20171116, end: 20180621
  41. GABAPENTIN [Concomitant]
     Active Substance: GABAPENTIN
     Dosage: 300 MG EVERY 0.33 DAY
     Route: 048
     Dates: start: 20171116, end: 20180621
  42. IBUPROFEN [Concomitant]
     Active Substance: IBUPROFEN
     Indication: Pain
     Dosage: 200 MG EVERY 0.33 DAY
     Route: 048
     Dates: start: 20180308, end: 20180621
  43. IBUPROFEN [Concomitant]
     Active Substance: IBUPROFEN
     Dosage: 200 MG, 3X/DAY (CUMULATIVE DOSE TO FIRST REACTION: 246000.0 MG)
     Route: 048
     Dates: start: 20180308, end: 20180621
  44. LANSOPRAZOLE [Concomitant]
     Active Substance: LANSOPRAZOLE
     Indication: Product used for unknown indication
     Dosage: 30 MG, 1X/DAY (CUMULATIVE DOSE TO FIRST REACTION: 23790.0 MG)
     Route: 048
     Dates: start: 20190326
  45. POLYETHYLENE GLYCOL 3350\POTASSIUM CHLORIDE\SODIUM BICARBONATE\SODIUM [Concomitant]
     Active Substance: POLYETHYLENE GLYCOL 3350\POTASSIUM CHLORIDE\SODIUM BICARBONATE\SODIUM CHLORIDE
     Indication: Constipation
     Dosage: 2 SACHET
     Route: 048
     Dates: start: 20171009, end: 20190326
  46. LEVETIRACETAM [Concomitant]
     Active Substance: LEVETIRACETAM
     Indication: Seizure
     Dosage: 500 MG, 2X/DAY (CUMULATIVE DOSE TO FIRST REACTION: 711000.0 MG)
     Route: 048
     Dates: start: 20190103, end: 20190326
  47. LEVETIRACETAM [Concomitant]
     Active Substance: LEVETIRACETAM
     Dosage: 250 MG, 1X/DAY (CUMULATIVE DOSE TO FIRST REACTION: 345000.0 MG)
     Route: 048
     Dates: start: 20181213, end: 20190103
  48. LEVETIRACETAM [Concomitant]
     Active Substance: LEVETIRACETAM
     Dosage: 250 MG, BID (CUMULATIVE DOSE: 345000.0 MG)
     Route: 048
     Dates: start: 20181213, end: 20190103
  49. LEVETIRACETAM [Concomitant]
     Active Substance: LEVETIRACETAM
     Dosage: 500 MG EVERY 0.5 DAY
     Route: 048
     Dates: start: 20190103, end: 20190326
  50. LEVETIRACETAM [Concomitant]
     Active Substance: LEVETIRACETAM
     Dosage: 250 MG EVERY 0.5 DAY
     Route: 048
     Dates: start: 20181213, end: 20190103
  51. LEVETIRACETAM [Concomitant]
     Active Substance: LEVETIRACETAM
     Dosage: 500 MG, EVERY 0.5 DAY
     Route: 048
     Dates: start: 20190103
  52. POLYETHYLENE GLYCOLS [Concomitant]
     Active Substance: POLYETHYLENE GLYCOLS
     Indication: Constipation
     Dosage: 1 DF, 1X/DAY
     Route: 048
     Dates: start: 20170922, end: 20190326
  53. METOCLOPRAMIDE [Concomitant]
     Active Substance: METOCLOPRAMIDE
     Indication: Nausea
     Dosage: UNK
     Dates: start: 20161117, end: 20161117
  54. METOCLOPRAMIDE [Concomitant]
     Active Substance: METOCLOPRAMIDE
     Dosage: 10 MG, UNK
     Dates: start: 20170510, end: 20190326
  55. METOCLOPRAMIDE [Concomitant]
     Active Substance: METOCLOPRAMIDE
     Dosage: 10 MG
     Route: 042
     Dates: start: 20161117, end: 20161117
  56. ONDANSETRON [Concomitant]
     Active Substance: ONDANSETRON
     Indication: Nausea
     Dosage: 4 MG, UNK
     Route: 048
     Dates: start: 20170510, end: 20190326
  57. MORPHINE SULFATE [Concomitant]
     Active Substance: MORPHINE SULFATE
     Indication: Pain
     Dosage: 5 MG
     Route: 048
     Dates: start: 20180830, end: 20190326
  58. MORPHINE SULFATE [Concomitant]
     Active Substance: MORPHINE SULFATE
     Dosage: 5 MG, UNK
     Route: 048
     Dates: start: 20180830, end: 20190326
  59. OXYCONTIN [Concomitant]
     Active Substance: OXYCODONE HYDROCHLORIDE
     Indication: Pain
     Dosage: UNK UNK, 2X/DAY
     Route: 048
     Dates: start: 20171116, end: 20180621
  60. OXYCONTIN [Concomitant]
     Active Substance: OXYCODONE HYDROCHLORIDE
     Dosage: EVERY 0.5 DAY
     Route: 048
     Dates: start: 20171116, end: 20180621
  61. TINZAPARIN [Concomitant]
     Active Substance: TINZAPARIN
     Indication: Product used for unknown indication
     Dosage: 4,500 UNIT, EVERY 1 DAY
     Route: 058
     Dates: start: 20181205, end: 20181212
  62. VOLTAROL [Concomitant]
     Active Substance: DICLOFENAC SODIUM
     Dosage: 1 DROP
     Route: 061
     Dates: start: 20181023, end: 20190326
  63. AMOXICILLIN\CLAVULANATE POTASSIUM [Concomitant]
     Active Substance: AMOXICILLIN\CLAVULANATE POTASSIUM
     Dosage: 500 MG ONCE DAILY
     Route: 048
     Dates: start: 20161207
  64. AMOXICILLIN\CLAVULANATE POTASSIUM [Concomitant]
     Active Substance: AMOXICILLIN\CLAVULANATE POTASSIUM
     Dosage: 500 MG ONCE DAILY
     Route: 048
     Dates: start: 20170125, end: 20170130
  65. AMOXICILLIN\CLAVULANATE POTASSIUM [Concomitant]
     Active Substance: AMOXICILLIN\CLAVULANATE POTASSIUM
     Indication: Lower respiratory tract infection
     Dosage: 1.2G ONCE DAILY
     Route: 042
     Dates: start: 20170122, end: 20170124
  66. AMOXICILLIN\CLAVULANATE POTASSIUM [Concomitant]
     Active Substance: AMOXICILLIN\CLAVULANATE POTASSIUM
     Dosage: 1500 MG, QD (PHARMACEUTICAL DOSAGE FORM: 245; CUMULATIVE DOSE: 18G)
     Route: 048
     Dates: start: 20161207
  67. AMOXICILLIN\CLAVULANATE POTASSIUM [Concomitant]
     Active Substance: AMOXICILLIN\CLAVULANATE POTASSIUM
     Dosage: 3.6 G, QD (PHARMACEUTICAL DOSAGE FORM: 245; CUMULATIVE DOSE: 18G)
     Route: 042
     Dates: start: 20170122, end: 20170126
  68. AMOXICILLIN\CLAVULANATE POTASSIUM [Concomitant]
     Active Substance: AMOXICILLIN\CLAVULANATE POTASSIUM
     Dosage: 500 MG, QD (PHARMACEUTICAL DOSAGE FORM: 245; CUMULATIVE DOSE: 18G)
     Route: 048
     Dates: start: 20161207
  69. LACTULOSE [Concomitant]
     Active Substance: LACTULOSE
     Indication: Constipation
     Dosage: UNK
     Dates: start: 20180830, end: 20190326
  70. OXYCODONE [Concomitant]
     Active Substance: OXYCODONE
     Indication: Back pain
     Dosage: UNK
     Dates: start: 20171012, end: 20171101
  71. OXYCODONE [Concomitant]
     Active Substance: OXYCODONE
     Dosage: UNK
     Dates: start: 20171101, end: 20171130
  72. OXYCODONE [Concomitant]
     Active Substance: OXYCODONE
     Dosage: UNK
     Dates: start: 20171130, end: 20190326
  73. DALTEPARIN [Concomitant]
     Active Substance: DALTEPARIN
     Indication: Deep vein thrombosis
     Dosage: UNK
     Dates: start: 20170418, end: 20180510
  74. CASSIA SENNA FRUIT EXTRACT [Concomitant]
     Indication: Product used for unknown indication
     Dosage: 15 MG, QD (PHARMACEUTICAL DOSAGE FORM: 230; CUMULATIVE DOSE: 2412.371 MG)
     Route: 048
     Dates: start: 20170922, end: 20180404
  75. DICLOFENAC [Concomitant]
     Active Substance: DICLOFENAC
     Indication: Product used for unknown indication
     Dosage: 1 DRP
     Route: 061
     Dates: start: 20181023, end: 20190326
  76. DICLOFENAC [Concomitant]
     Active Substance: DICLOFENAC
     Dosage: UNK
  77. FUROSEMIDE [Concomitant]
     Active Substance: FUROSEMIDE
     Indication: Oedema peripheral
     Dosage: 20 MG (PHARMACSEUTICAL DOSAGE FORM: 245)
     Route: 048
     Dates: start: 20170501
  78. FUROSEMIDE [Concomitant]
     Active Substance: FUROSEMIDE
     Dosage: 40 MG (PHARMACSEUTICAL DOSAGE FORM: 245)
     Route: 048
     Dates: start: 20170308
  79. HYDROCORTISONE [Concomitant]
     Active Substance: HYDROCORTISONE
     Indication: Product used for unknown indication
     Dosage: 100 MG
     Route: 042
     Dates: start: 20161117, end: 20161117
  80. HYDROCORTISONE [Concomitant]
     Active Substance: HYDROCORTISONE
     Dosage: 50 MG
     Route: 042
     Dates: start: 20170122, end: 20170122
  81. MORPHINE SULFATE [Concomitant]
     Active Substance: MORPHINE SULFATE
     Indication: Product used for unknown indication
     Dosage: 10 MG
     Route: 048
     Dates: start: 20170922
  82. NAPROXEN [Concomitant]
     Active Substance: NAPROXEN
     Indication: Product used for unknown indication
     Dosage: 500 MG, QD (PHARMACEUTICAL DOSAGE FORM: 245)
     Route: 048
     Dates: start: 20170922
  83. RAMIPRIL [Concomitant]
     Active Substance: RAMIPRIL
     Indication: Product used for unknown indication
     Dosage: 1.25 MG (PHARMACEUTICAL DOSAGE FORM: 245)
     Route: 048
     Dates: start: 20170608
  84. RAMIPRIL [Concomitant]
     Active Substance: RAMIPRIL
     Dosage: UNK

REACTIONS (9)
  - Disease progression [Fatal]
  - Spinal compression fracture [Fatal]
  - Joint swelling [Fatal]
  - Deep vein thrombosis [Fatal]
  - Back pain [Fatal]
  - Constipation [Fatal]
  - Peripheral swelling [Fatal]
  - Swelling face [Fatal]
  - Ejection fraction decreased [Fatal]

NARRATIVE: CASE EVENT DATE: 20170122
